FAERS Safety Report 7037402-3 (Version None)
Quarter: 2010Q4

REPORT INFORMATION
  Report Type: 
  Country: None (occurrence: None)
  Receive Date: 20101011
  Receipt Date: 20100929
  Transmission Date: 20110411
  Serious: Yes (Other)
  Sender: FDA-Public Use
  Company Number: US-PFIZER INC-2010124212

PATIENT
  Sex: Male
  Weight: 61.224 kg

DRUGS (1)
  1. DEPO-TESTOSTERONE [Suspect]
     Indication: PRIMARY HYPOGONADISM
     Dosage: UNK

REACTIONS (1)
  - HYPERLIPIDAEMIA [None]
